FAERS Safety Report 7042855-0 (Version None)
Quarter: 2010Q4

REPORT INFORMATION
  Report Type: 
  Country: None (occurrence: None)
  Receive Date: 20101013
  Receipt Date: 20100628
  Transmission Date: 20110411
  Serious: No
  Sender: FDA-Public Use
  Company Number: US-ASTRAZENECA-2010SE24925

PATIENT
  Sex: Female
  Weight: 77.1 kg

DRUGS (6)
  1. SYMBICORT [Suspect]
     Indication: COUGH
     Dosage: 160/4.5MCG 2 PUFFS
     Route: 055
  2. TOPROL-XL [Concomitant]
  3. LISINOPRIL [Concomitant]
  4. VITAMINS [Concomitant]
  5. VITAMIN D [Concomitant]
  6. CYMBALTA [Concomitant]

REACTIONS (2)
  - DYSPHONIA [None]
  - OROPHARYNGEAL PAIN [None]
